FAERS Safety Report 21780482 (Version 2)
Quarter: 2023Q2

REPORT INFORMATION
  Report Type: Spontaneous
  Country: US (occurrence: US)
  Receive Date: 20221227
  Receipt Date: 20230609
  Transmission Date: 20230722
  Serious: No
  Sender: FDA-Public Use
  Company Number: US-BRISTOL-MYERS SQUIBB COMPANY-2022-159138

PATIENT
  Age: 91 Year
  Sex: Female

DRUGS (1)
  1. REVLIMID [Suspect]
     Active Substance: LENALIDOMIDE
     Indication: Plasma cell myeloma
     Route: 048
     Dates: start: 201809

REACTIONS (5)
  - Nasopharyngitis [Unknown]
  - Oropharyngeal pain [Unknown]
  - Product dose omission in error [Unknown]
  - Erythema [Unknown]
  - Sneezing [Unknown]

NARRATIVE: CASE EVENT DATE: 20221224
